FAERS Safety Report 9341466 (Version 2)
Quarter: 2013Q4

REPORT INFORMATION
  Report Type: Spontaneous
  Country: DZ (occurrence: DZ)
  Receive Date: 20130611
  Receipt Date: 20131128
  Transmission Date: 20140711
  Serious: Yes (Hospitalization)
  Sender: FDA-Public Use
  Company Number: DZ-JNJFOC-20130601186

PATIENT
  Age: 29 Year
  Sex: Male
  Weight: 59 kg

DRUGS (5)
  1. REMICADE [Suspect]
     Indication: CROHN^S DISEASE
     Dosage: WEEK 0
     Route: 042
     Dates: start: 20121127
  2. REMICADE [Suspect]
     Indication: CROHN^S DISEASE
     Dosage: WEEK 2
     Route: 042
     Dates: start: 20121211
  3. REMICADE [Suspect]
     Indication: CROHN^S DISEASE
     Dosage: WEEK 6
     Route: 042
     Dates: start: 20130123, end: 2013
  4. REMICADE [Suspect]
     Indication: CROHN^S DISEASE
     Dosage: WEEK 8
     Route: 042
     Dates: start: 20130208
  5. SOLUPRED [Concomitant]
     Indication: CROHN^S DISEASE
     Route: 048
     Dates: start: 2010

REACTIONS (1)
  - Pulmonary tuberculosis [Recovering/Resolving]
